FAERS Safety Report 14453533 (Version 1)
Quarter: 2018Q1

REPORT INFORMATION
  Report Type: Spontaneous
  Country: US (occurrence: US)
  Receive Date: 20180127
  Receipt Date: 20180127
  Transmission Date: 20180509
  Serious: No
  Sender: FDA-Public Use
  Company Number: None

PATIENT
  Age: 33 Year
  Sex: Female
  Weight: 125.1 kg

DRUGS (3)
  1. GABAPENTIN. [Concomitant]
     Active Substance: GABAPENTIN
  2. ZIPRASIDONE 40MG NDC IS 68001-0137-06 [Suspect]
     Active Substance: ZIPRASIDONE
     Indication: BIPOLAR DISORDER
     Dosage: ?          QUANTITY:28 CAPSULE(S);?
     Route: 048
     Dates: start: 20180117
  3. PROZAC [Concomitant]
     Active Substance: FLUOXETINE HYDROCHLORIDE

REACTIONS (12)
  - Balance disorder [None]
  - Dyskinesia [None]
  - Disturbance in attention [None]
  - Tremor [None]
  - Hypertension [None]
  - Dysphagia [None]
  - Headache [None]
  - Mood altered [None]
  - Neck pain [None]
  - Dyspnoea [None]
  - Somnolence [None]
  - Muscle twitching [None]

NARRATIVE: CASE EVENT DATE: 20180127
